FAERS Safety Report 20838168 (Version 1)
Quarter: 2022Q2

REPORT INFORMATION
  Report Type: Spontaneous
  Country: US (occurrence: US)
  Receive Date: 20220517
  Receipt Date: 20220517
  Transmission Date: 20220721
  Serious: No
  Sender: FDA-Public Use
  Company Number: US-ALLERGAN-2209757US

PATIENT
  Age: 36 Year
  Sex: Female

DRUGS (2)
  1. KYBELLA [Suspect]
     Active Substance: DEOXYCHOLIC ACID
     Indication: Fat tissue increased
     Dosage: UNK UNK, SINGLE
  2. KYBELLA [Suspect]
     Active Substance: DEOXYCHOLIC ACID
     Dosage: UNK UNK, SINGLE

REACTIONS (2)
  - Product use in unapproved indication [Unknown]
  - Face injury [Not Recovered/Not Resolved]
